FAERS Safety Report 8179068-5 (Version None)
Quarter: 2012Q1

REPORT INFORMATION
  Report Type: 
  Country: None (occurrence: None)
  Receive Date: 20120302
  Receipt Date: 20120221
  Transmission Date: 20120608
  Serious: Yes (Death)
  Sender: FDA-Public Use
  Company Number: JP-ROCHE-1037059

PATIENT
  Sex: Male
  Weight: 36 kg

DRUGS (5)
  1. FLUOROURACIL [Concomitant]
     Route: 041
     Dates: start: 20110704, end: 20110701
  2. FLUOROURACIL [Concomitant]
     Indication: COLON CANCER METASTATIC
     Route: 040
     Dates: start: 20110704, end: 20110720
  3. OXALIPLATIN [Concomitant]
     Indication: COLON CANCER METASTATIC
     Route: 041
     Dates: start: 20110704, end: 20110720
  4. LEVOLEUCOVORIN CALCIUM [Concomitant]
     Indication: COLON CANCER METASTATIC
     Route: 041
     Dates: start: 20110704, end: 20110720
  5. AVASTIN [Suspect]
     Indication: COLON CANCER METASTATIC
     Route: 041
     Dates: start: 20110704, end: 20110720

REACTIONS (11)
  - SKIN EROSION [None]
  - IMPAIRED HEALING [None]
  - APPLICATION SITE EROSION [None]
  - HAEMORRHAGE [None]
  - APPLICATION SITE ULCER [None]
  - BLOOD ALBUMIN DECREASED [None]
  - ULCER [None]
  - SOFT TISSUE NECROSIS [None]
  - MALNUTRITION [None]
  - HAEMOGLOBIN DECREASED [None]
  - DEATH [None]
